FAERS Safety Report 15848887 (Version 6)
Quarter: 2019Q2

REPORT INFORMATION
  Report Type: Report from Study
  Country: US (occurrence: US)
  Receive Date: 20190121
  Receipt Date: 20190627
  Transmission Date: 20190711
  Serious: Yes (Other)
  Sender: FDA-Public Use
  Company Number: US-PFIZER INC-2018447545

PATIENT
  Age: 74 Year
  Sex: Female

DRUGS (3)
  1. FASLODEX [Concomitant]
     Active Substance: FULVESTRANT
     Dosage: UNK
     Route: 030
  2. IBRANCE [Suspect]
     Active Substance: PALBOCICLIB
     Indication: BREAST CANCER METASTATIC
     Dosage: 125 MG, CYCLIC (21 DAYS ON/7 DAYS OFF) (3 WEEKS ON 1 WEEK OFF)
     Route: 048
     Dates: start: 20181011, end: 20181107
  3. IBRANCE [Suspect]
     Active Substance: PALBOCICLIB
     Dosage: 125 MG, CYCLIC (21 DAYS ON/7 DAYS OFF)
     Route: 048
     Dates: start: 20181116

REACTIONS (47)
  - Asthenia [Unknown]
  - Abdominal pain upper [Not Recovered/Not Resolved]
  - Condition aggravated [Not Recovered/Not Resolved]
  - Poor quality sleep [Unknown]
  - Decreased appetite [Unknown]
  - Arthralgia [Unknown]
  - Renal impairment [Unknown]
  - Fatigue [Recovered/Resolved]
  - Constipation [Unknown]
  - Memory impairment [Unknown]
  - Nephrolithiasis [Unknown]
  - Nausea [Recovered/Resolved]
  - Depression [Unknown]
  - Product dose omission [Unknown]
  - Skin swelling [Unknown]
  - Gastric disorder [Recovered/Resolved]
  - Herpes virus infection [Recovered/Resolved]
  - Pulmonary oedema [Unknown]
  - Gingival pain [Unknown]
  - Anaemia [Unknown]
  - Sinusitis [Unknown]
  - Intentional dose omission [Unknown]
  - Abdominal distension [Unknown]
  - Peripheral swelling [Unknown]
  - Full blood count decreased [Unknown]
  - Urinary incontinence [Unknown]
  - Dizziness [Unknown]
  - Faeces soft [Unknown]
  - Productive cough [Unknown]
  - Rhinorrhoea [Unknown]
  - Epistaxis [Not Recovered/Not Resolved]
  - Back pain [Unknown]
  - Anal incontinence [Unknown]
  - Herpes zoster [Recovered/Resolved]
  - Fall [Unknown]
  - Neutropenia [Recovered/Resolved]
  - Diarrhoea [Recovered/Resolved]
  - Alopecia [Unknown]
  - Viral upper respiratory tract infection [Unknown]
  - Dyspepsia [Unknown]
  - Stomatitis [Unknown]
  - Tooth discolouration [Unknown]
  - Hyperaesthesia teeth [Unknown]
  - Scab [Unknown]
  - Dyspnoea [Unknown]
  - Cystitis [Unknown]
  - Pruritus [Unknown]

NARRATIVE: CASE EVENT DATE: 2018
